FAERS Safety Report 9263541 (Version 1)
Quarter: 2013Q2

REPORT INFORMATION
  Report Type: Spontaneous
  Country: FI (occurrence: FI)
  Receive Date: 20130430
  Receipt Date: 20130430
  Transmission Date: 20140414
  Serious: Yes (Other)
  Sender: FDA-Public Use
  Company Number: FI-ROCHE-1219684

PATIENT
  Age: 37 Year
  Sex: Female

DRUGS (5)
  1. XELODA [Suspect]
     Indication: BREAST CANCER METASTATIC
     Route: 048
  2. LAPATINIB [Suspect]
     Indication: BREAST CANCER METASTATIC
     Route: 065
  3. DENOSUMAB [Concomitant]
     Indication: BREAST CANCER METASTATIC
  4. DEXAMETASON [Concomitant]
     Dosage: DAILY
     Route: 065
  5. DEXAMETASON [Concomitant]
     Dosage: DOSE INCREASED
     Route: 065

REACTIONS (6)
  - Diarrhoea [Unknown]
  - Rash [Unknown]
  - Headache [Not Recovered/Not Resolved]
  - General physical health deterioration [Not Recovered/Not Resolved]
  - Epilepsy [Unknown]
  - Arthralgia [Not Recovered/Not Resolved]
